FAERS Safety Report 7094185-9 (Version None)
Quarter: 2010Q4

REPORT INFORMATION
  Report Type: 
  Country: None (occurrence: None)
  Receive Date: 20101110
  Receipt Date: 20101020
  Transmission Date: 20110411
  Serious: Yes (Life-Threatening, Hospitalization)
  Sender: FDA-Public Use
  Company Number: JP-AMGEN-JPNSP2010001767

PATIENT

DRUGS (11)
  1. ENBREL [Suspect]
     Indication: STILL'S DISEASE ADULT ONSET
     Route: 058
     Dates: start: 20100522, end: 20100605
  2. ENBREL [Suspect]
     Route: 058
     Dates: start: 20100612, end: 20100708
  3. MEDROL [Suspect]
     Indication: STILL'S DISEASE ADULT ONSET
     Dates: start: 20100424
  4. METHOTREXATE [Suspect]
     Indication: STILL'S DISEASE ADULT ONSET
     Route: 048
     Dates: start: 20060828, end: 20060904
  5. METHOTREXATE [Suspect]
     Route: 048
     Dates: start: 20060911
  6. METHOTREXATE [Suspect]
     Route: 048
     Dates: start: 20060925
  7. METHOTREXATE [Suspect]
     Route: 048
     Dates: start: 20061002
  8. METHOTREXATE [Suspect]
     Route: 048
     Dates: start: 20070307, end: 20100710
  9. METHOTREXATE [Suspect]
     Route: 048
     Dates: start: 20100824
  10. ISCOTIN [Suspect]
     Indication: ANTIBIOTIC PROPHYLAXIS
     Route: 048
     Dates: start: 20100522, end: 20100801
  11. SOL-MELCORT [Concomitant]
     Indication: ARTHRITIS
     Route: 042
     Dates: start: 20100424, end: 20100424

REACTIONS (5)
  - CALCULUS URINARY [None]
  - ERYTHEMA MULTIFORME [None]
  - HAEMORRHAGE SUBCUTANEOUS [None]
  - HEPATITIS ACUTE [None]
  - SPINAL FRACTURE [None]
